FAERS Safety Report 8519955-9 (Version None)
Quarter: 2012Q3

REPORT INFORMATION
  Report Type: 
  Country: None (occurrence: None)
  Receive Date: 20120719
  Receipt Date: 20120709
  Transmission Date: 20120928
  Serious: Yes (Hospitalization)
  Sender: FDA-Public Use
  Company Number: DE-SHIRE-ALL1-2012-02009

PATIENT
  Sex: Female

DRUGS (4)
  1. AMLODIPINE BESYLATE [Concomitant]
     Indication: HYPERTENSION
     Dosage: UNK, UNKNOWN
     Route: 048
  2. MESALAMINE [Suspect]
     Dosage: UNK, UNKNOWN
     Route: 048
  3. MESALAMINE [Suspect]
     Indication: COLITIS ULCERATIVE
     Dosage: UNK, 2X/DAY: BID
     Route: 048
     Dates: start: 20110101, end: 20110501
  4. GLIMEPIRID [Concomitant]
     Indication: TYPE 2 DIABETES MELLITUS
     Dosage: UNK, UNKNOWN
     Route: 048

REACTIONS (4)
  - LARYNGITIS [None]
  - CANDIDIASIS [None]
  - STEVENS-JOHNSON SYNDROME [None]
  - RASH GENERALISED [None]
